FAERS Safety Report 10485088 (Version 1)
Quarter: 2014Q3

REPORT INFORMATION
  Report Type: Other
  Country: PL (occurrence: PL)
  Receive Date: 20140930
  Receipt Date: 20140930
  Transmission Date: 20150326
  Serious: Yes (Other)
  Sender: FDA-Public Use
  Company Number: PL-PURDUE-DEU-2014-0015453

PATIENT
  Age: 26 Year
  Sex: Female

DRUGS (9)
  1. METOCLOPRAMIDE. [Interacting]
     Active Substance: METOCLOPRAMIDE
     Indication: DYSPEPSIA
     Dosage: 20 MG, DAILY
     Route: 051
  2. ATG                                /00575401/ [Concomitant]
     Active Substance: LAPINE T-LYMPHOCYTE IMMUNE GLOBULIN
     Indication: ATRIOVENTRICULAR BLOCK COMPLETE
  3. MYCOPHENOLATE MOFETIL. [Concomitant]
     Active Substance: MYCOPHENOLATE MOFETIL
     Indication: IMMUNOSUPPRESSANT DRUG THERAPY
  4. METOCLOPRAMIDE. [Interacting]
     Active Substance: METOCLOPRAMIDE
     Indication: POST PROCEDURAL CONSTIPATION
  5. TACROLIMUS. [Concomitant]
     Active Substance: TACROLIMUS
     Indication: IMMUNOSUPPRESSANT DRUG THERAPY
  6. METOCLOPRAMIDE. [Interacting]
     Active Substance: METOCLOPRAMIDE
     Indication: PROCEDURAL VOMITING
  7. STEROIDS [Concomitant]
     Active Substance: UNSPECIFIED INGREDIENT
     Indication: IMMUNOSUPPRESSANT DRUG THERAPY
  8. METOCLOPRAMIDE. [Interacting]
     Active Substance: METOCLOPRAMIDE
     Indication: PROCEDURAL NAUSEA
  9. NON-PMN THEOPHYLLINE [Suspect]
     Active Substance: THEOPHYLLINE
     Indication: BRADYCARDIA
     Route: 065

REACTIONS (3)
  - Overdose [Unknown]
  - Drug interaction [Unknown]
  - Generalised tonic-clonic seizure [Recovered/Resolved]
